FAERS Safety Report 4852445-3 (Version None)
Quarter: 2005Q4

REPORT INFORMATION
  Report Type: 
  Country: None (occurrence: None)
  Receive Date: 20051130
  Receipt Date: 20050919
  Transmission Date: 20060501
  Serious: No
  Sender: FDA-Public Use
  Company Number: WAES 0503USA02798

PATIENT
  Age: 79 Year
  Sex: Male

DRUGS (4)
  1. ZETIA [Suspect]
     Indication: BLOOD CHOLESTEROL INCREASED
     Dosage: 10 MG/DAILY/PO
     Route: 048
     Dates: start: 20030901, end: 20050401
  2. NIASPAN [Concomitant]
  3. PLAVIX [Concomitant]
  4. WELCHOL [Concomitant]

REACTIONS (2)
  - DIARRHOEA [None]
  - MYALGIA [None]
